FAERS Safety Report 9704043 (Version 2)
Quarter: 2013Q4

REPORT INFORMATION
  Report Type: Spontaneous
  Country: DE (occurrence: DE)
  Receive Date: 20131122
  Receipt Date: 20131206
  Transmission Date: 20140711
  Serious: Yes (Hospitalization)
  Sender: FDA-Public Use
  Company Number: DE-GALDERMA-DE13003674

PATIENT
  Age: 54 Year
  Sex: Female

DRUGS (2)
  1. METROCREAM [Suspect]
     Indication: ROSACEA
     Dosage: 0.75 %
     Route: 061
     Dates: start: 200804, end: 200904
  2. METROGEL [Suspect]
     Indication: ROSACEA
     Route: 061
     Dates: start: 200801, end: 200804

REACTIONS (3)
  - Basal cell carcinoma [Recovered/Resolved]
  - Basal cell carcinoma [Recovered/Resolved]
  - Incorrect drug administration duration [Recovered/Resolved]
